FAERS Safety Report 9677600 (Version 1)
Quarter: 2013Q4

REPORT INFORMATION
  Report Type: Spontaneous
  Country: TR (occurrence: TR)
  Receive Date: 20131108
  Receipt Date: 20131108
  Transmission Date: 20140711
  Serious: Yes (Other)
  Sender: FDA-Public Use
  Company Number: TR-JNJFOC-20131100038

PATIENT
  Age: 31 Year
  Sex: Female
  Weight: 55 kg

DRUGS (2)
  1. INFLIXIMAB, RECOMBINANT [Suspect]
     Indication: BEHCET^S SYNDROME
     Route: 042
     Dates: start: 20130814, end: 20131023
  2. IMURAN [Concomitant]
     Route: 048

REACTIONS (3)
  - Respiratory distress [Recovered/Resolved]
  - Off label use [Unknown]
  - Pruritus [Recovered/Resolved]
